FAERS Safety Report 24955971 (Version 3)
Quarter: 2025Q3

REPORT INFORMATION
  Report Type: Report from Study
  Country: JP (occurrence: JP)
  Receive Date: 20250211
  Receipt Date: 20250802
  Transmission Date: 20251021
  Serious: No
  Sender: ALEXION PHARMACEUTICALS
  Company Number: JP-ALXN-A202100107

PATIENT
  Age: 55 Year
  Sex: Female
  Weight: 60 kg

DRUGS (14)
  1. SOLIRIS [Suspect]
     Active Substance: ECULIZUMAB
     Indication: Myasthenia gravis
     Dosage: 900 MILLIGRAM, QW
     Dates: start: 20181227, end: 20190116
  2. SOLIRIS [Suspect]
     Active Substance: ECULIZUMAB
     Dosage: 1200 MILLIGRAM, Q2W
     Dates: start: 20190123, end: 20220831
  3. PREDNISOLONE [Concomitant]
     Active Substance: PREDNISOLONE
     Indication: Myasthenia gravis
     Dosage: 17.5 MILLIGRAM, QD
  4. PREDNISOLONE [Concomitant]
     Active Substance: PREDNISOLONE
  5. PREDNISOLONE [Concomitant]
     Active Substance: PREDNISOLONE
     Dates: start: 20190814, end: 20200121
  6. PREDNISOLONE [Concomitant]
     Active Substance: PREDNISOLONE
     Dates: start: 20200122, end: 20200609
  7. PREDNISOLONE [Concomitant]
     Active Substance: PREDNISOLONE
  8. NEORAL [Concomitant]
     Active Substance: CYCLOSPORINE
     Indication: Myasthenia gravis
     Dosage: 180 MILLIGRAM, QD
  9. NEORAL [Concomitant]
     Active Substance: CYCLOSPORINE
     Dosage: 90 MILLIGRAM, BID
  10. NEORAL [Concomitant]
     Active Substance: CYCLOSPORINE
     Dosage: 85 MILLIGRAM, BID
  11. MYTELASE [Concomitant]
     Active Substance: AMBENONIUM CHLORIDE
     Indication: Myasthenia gravis
     Dosage: 5 MILLIGRAM, TID
     Dates: end: 20190507
  12. MYTELASE [Concomitant]
     Active Substance: AMBENONIUM CHLORIDE
     Dosage: 5 MILLIGRAM, BID
     Dates: start: 20190508
  13. PRALUENT [Concomitant]
     Active Substance: ALIROCUMAB
     Indication: Dyslipidaemia
     Dosage: 75 MILLIGRAM, Q2W
     Dates: start: 20171213
  14. REPATHA [Concomitant]
     Active Substance: EVOLOCUMAB
     Indication: Dyslipidaemia
     Dosage: 140 MILLIGRAM, Q2W

REACTIONS (2)
  - Upper respiratory tract inflammation [Recovering/Resolving]
  - Drug ineffective [Unknown]

NARRATIVE: CASE EVENT DATE: 20201216
